FAERS Safety Report 13374263 (Version 12)
Quarter: 2018Q2

REPORT INFORMATION
  Report Type: Report from Study
  Country: JP (occurrence: JP)
  Receive Date: 20170327
  Receipt Date: 20180608
  Transmission Date: 20180711
  Serious: Yes (Hospitalization)
  Sender: FDA-Public Use
  Company Number: JP-ROCHE-1910694

PATIENT
  Age: 55 Year
  Sex: Male
  Weight: 60.9 kg

DRUGS (17)
  1. CISPLATIN. [Suspect]
     Active Substance: CISPLATIN
     Route: 042
     Dates: start: 20170502
  2. MAGNESIUM OXIDE. [Concomitant]
     Active Substance: MAGNESIUM OXIDE
     Indication: CONSTIPATION
     Route: 065
     Dates: start: 20170313, end: 20170315
  3. OLANZAPINE. [Concomitant]
     Active Substance: OLANZAPINE
     Indication: DECREASED APPETITE
     Route: 065
     Dates: start: 20170312, end: 20170314
  4. CISPLATIN. [Suspect]
     Active Substance: CISPLATIN
     Indication: NON-SMALL CELL LUNG CANCER STAGE IV
     Dosage: THE MOST RECENT DOSE OF CISPLATIN WAS 127.5 MG ON 08/MAR/2017
     Route: 042
     Dates: start: 20170308
  5. MAGNESIUM SULFATE. [Concomitant]
     Active Substance: MAGNESIUM SULFATE
     Route: 065
     Dates: start: 20170308, end: 20170613
  6. ATEZOLIZUMAB. [Suspect]
     Active Substance: ATEZOLIZUMAB
     Indication: NON-SMALL CELL LUNG CANCER STAGE IV
     Dosage: MOST RECENT DOSE OF ATEZOLIZUMAB: 08/MAR/2017
     Route: 042
     Dates: start: 20170308
  7. DOMPERIDONE [Concomitant]
     Active Substance: DOMPERIDONE
     Indication: DECREASED APPETITE
     Route: 065
     Dates: start: 20170311, end: 20170316
  8. D-MANNITOL [Concomitant]
     Active Substance: MANNITOL
     Route: 065
     Dates: start: 20170308, end: 20170613
  9. POTASSIUM CHLORIDE. [Concomitant]
     Active Substance: POTASSIUM CHLORIDE
     Route: 065
     Dates: start: 20170308, end: 20170613
  10. METHYCOBAL [Concomitant]
     Active Substance: METHYLCOBALAMIN
     Route: 065
     Dates: start: 20170227, end: 20170227
  11. FOSAPREPITANT MEGLUMINE [Concomitant]
     Active Substance: FOSAPREPITANT
     Route: 065
     Dates: start: 20170308, end: 20170613
  12. PEMETREXED. [Suspect]
     Active Substance: PEMETREXED
     Indication: NON-SMALL CELL LUNG CANCER STAGE IV
     Dosage: THE MOST RECENT DOSE OF PEMETREXED WAS 850 MG ON 08/MAR/2017.
     Route: 042
     Dates: start: 20170308
  13. VONOPRAZAN FUMARATE [Concomitant]
     Active Substance: VONOPRAZAN FUMURATE
     Route: 065
     Dates: start: 20170311, end: 20171113
  14. BAKTAR [Concomitant]
     Active Substance: SULFAMETHOXAZOLE\TRIMETHOPRIM
     Route: 065
     Dates: start: 20170325, end: 20170813
  15. ATEZOLIZUMAB. [Suspect]
     Active Substance: ATEZOLIZUMAB
     Route: 042
     Dates: start: 20170502
  16. PEMETREXED. [Suspect]
     Active Substance: PEMETREXED
     Route: 042
     Dates: start: 20170502
  17. GRANISETRON HYDROCHLORIDE. [Concomitant]
     Active Substance: GRANISETRON HYDROCHLORIDE
     Route: 065
     Dates: start: 20170308, end: 20170613

REACTIONS (2)
  - Febrile neutropenia [Recovered/Resolved]
  - Pyrexia [Recovered/Resolved]

NARRATIVE: CASE EVENT DATE: 20170317
